FAERS Safety Report 7910089-0 (Version None)
Quarter: 2011Q4

REPORT INFORMATION
  Report Type: 
  Country: None (occurrence: None)
  Receive Date: 20111111
  Receipt Date: 20111028
  Transmission Date: 20120403
  Serious: Yes (Hospitalization)
  Sender: FDA-Public Use
  Company Number: DE-ROCHE-1008721

PATIENT
  Sex: Male
  Weight: 72 kg

DRUGS (14)
  1. METAMIZOL [Concomitant]
     Dosage: 60 TRFP
     Dates: start: 20091013
  2. MAGNESIUM [Concomitant]
     Dates: start: 20091013
  3. METOPROLOL [Concomitant]
     Dates: start: 20091110
  4. MAGALDRATE [Concomitant]
     Dates: start: 20091013
  5. ASPIRIN [Concomitant]
     Dates: start: 20091013
  6. METOCLOPRAMIDE HYDROCHLORIDE [Concomitant]
     Dosage: 20 TRPF
     Dates: start: 20091013
  7. MIRCERA [Suspect]
     Indication: NEPHROGENIC ANAEMIA
     Route: 042
     Dates: start: 20110607
  8. EZETIMIBE/SIMVASTATIN [Concomitant]
     Dates: start: 20091013
  9. ZOPICLON [Concomitant]
     Dates: start: 20091013
  10. PANTOPRAZOLE [Concomitant]
     Dates: start: 20091013
  11. ALUMINIUM CHLORIDE HYDROXIDE HYDRATE [Concomitant]
     Dates: start: 20091229
  12. CALCIUM ACETATE [Concomitant]
     Dates: start: 20091013
  13. ROCALTROL [Concomitant]
     Dates: start: 20091013
  14. PANKREATIN [Concomitant]
     Dosage: 75000
     Dates: start: 20091013

REACTIONS (1)
  - VENOUS STENOSIS [None]
